FAERS Safety Report 22536878 (Version 1)
Quarter: 2023Q2

REPORT INFORMATION
  Report Type: Spontaneous
  Country: US (occurrence: None)
  Receive Date: 20230606
  Receipt Date: 20230606
  Transmission Date: 20230722
  Serious: No
  Sender: FDA-Public Use
  Company Number: None

PATIENT
  Sex: Female

DRUGS (6)
  1. VERZENIO [Suspect]
     Active Substance: ABEMACICLIB
     Indication: Breast cancer female
     Dosage: OTHER QUANTITY : 1T;?FREQUENCY : TWICE A DAY;?
     Route: 048
  2. LOSARTAN [Concomitant]
     Active Substance: LOSARTAN
  3. ANASTROZOLE [Concomitant]
     Active Substance: ANASTROZOLE
  4. ALENDRONATE [Concomitant]
     Active Substance: ALENDRONATE SODIUM
  5. IMODIUM [Concomitant]
     Active Substance: LOPERAMIDE HYDROCHLORIDE
  6. POTASSIUM [Concomitant]
     Active Substance: POTASSIUM

REACTIONS (9)
  - Fatigue [None]
  - Weight decreased [None]
  - Cough [None]
  - Alopecia [None]
  - Decreased appetite [None]
  - Syncope [None]
  - Blood potassium decreased [None]
  - Mental disorder [None]
  - Diarrhoea [None]
